FAERS Safety Report 10974260 (Version 1)
Quarter: 2015Q2

REPORT INFORMATION
  Report Type: Spontaneous
  Country: GB (occurrence: GB)
  Receive Date: 20150401
  Receipt Date: 20150401
  Transmission Date: 20150821
  Serious: Yes (Other)
  Sender: FDA-Public Use
  Company Number: GB-TEVA-550846ACC

PATIENT
  Age: 47 Year
  Sex: Female

DRUGS (6)
  1. ACTAVIS UK ZOPICLONE [Suspect]
     Active Substance: ZOPICLONE
     Dosage: AT NIGHT. FOR 2 WEEKS
     Route: 048
     Dates: start: 20150228
  2. AMITRIPTYLINE [Suspect]
     Active Substance: AMITRIPTYLINE
     Dosage: 200 MILLIGRAM DAILY;
     Route: 048
  3. LYRICA [Suspect]
     Active Substance: PREGABALIN
     Dosage: 450 MILLIGRAM DAILY;
     Route: 048
  4. LAMOTRIGINE. [Suspect]
     Active Substance: LAMOTRIGINE
     Dosage: 250 MILLIGRAM DAILY;
     Route: 048
  5. OXYCONTIN [Suspect]
     Active Substance: OXYCODONE HYDROCHLORIDE
     Dosage: 160 MILLIGRAM DAILY; MODIFIED-RELEASE TABLET
     Route: 048
  6. DULOXETINE [Suspect]
     Active Substance: DULOXETINE
     Dosage: 60 MILLIGRAM DAILY; IN THE MORNING

REACTIONS (1)
  - Loss of consciousness [Recovered/Resolved]
